FAERS Safety Report 17397282 (Version 1)
Quarter: 2020Q1

REPORT INFORMATION
  Report Type: Report from Study
  Country: IT (occurrence: IT)
  Receive Date: 20200210
  Receipt Date: 20200210
  Transmission Date: 20200409
  Serious: Yes (Hospitalization)
  Sender: FDA-Public Use
  Company Number: PHHY2016IT037189

PATIENT
  Age: 49 Year
  Sex: Female
  Weight: 90 kg

DRUGS (2)
  1. SIGNIFOR [Suspect]
     Active Substance: PASIREOTIDE DIASPARTATE
     Dosage: UNK
     Route: 065
     Dates: start: 20160331, end: 20160711
  2. SIGNIFOR [Suspect]
     Active Substance: PASIREOTIDE DIASPARTATE
     Indication: PITUITARY-DEPENDENT CUSHING^S SYNDROME
     Dosage: UNK
     Route: 058
     Dates: start: 20160303

REACTIONS (8)
  - Urosepsis [Recovered/Resolved]
  - Diarrhoea [Recovered/Resolved]
  - Vomiting [Unknown]
  - Pyrexia [Unknown]
  - Nausea [Unknown]
  - Abdominal pain [Unknown]
  - Abdominal pain upper [Recovered/Resolved]
  - Hepatomegaly [Recovered/Resolved]

NARRATIVE: CASE EVENT DATE: 20160313
